FAERS Safety Report 12405022 (Version 1)
Quarter: 2016Q2

REPORT INFORMATION
  Report Type: Report from Study
  Country: GB (occurrence: GB)
  Receive Date: 20160525
  Receipt Date: 20160525
  Transmission Date: 20160815
  Serious: Yes (Hospitalization)
  Sender: FDA-Public Use
  Company Number: GB-PFIZER INC-2016262868

PATIENT

DRUGS (2)
  1. SPIRONOLACTONE. [Suspect]
     Active Substance: SPIRONOLACTONE
     Indication: OSTEOARTHRITIS
  2. SPIRONOLACTONE. [Suspect]
     Active Substance: SPIRONOLACTONE
     Indication: OSTEOARTHRITIS
     Dosage: 25 MG, DAILY (FOR 12 WEEKS)
     Route: 048

REACTIONS (1)
  - Anal abscess [Unknown]
